FAERS Safety Report 6212204-6 (Version None)
Quarter: 2009Q2

REPORT INFORMATION
  Report Type: 
  Country: None (occurrence: None)
  Receive Date: 20090602
  Receipt Date: 20090527
  Transmission Date: 20091009
  Serious: Yes (Death, Hospitalization)
  Sender: FDA-Public Use
  Company Number: DE-SANOFI-SYNTHELABO-F04200900026

PATIENT
  Sex: Male
  Weight: 61.6 kg

DRUGS (11)
  1. FLUOROURACIL [Suspect]
     Indication: COLORECTAL CANCER METASTATIC
     Route: 041
     Dates: start: 20090101, end: 20090101
  2. FLUOROURACIL [Suspect]
     Route: 041
     Dates: start: 20090101, end: 20090101
  3. FOLINIC ACID [Suspect]
     Indication: COLORECTAL CANCER METASTATIC
     Route: 041
     Dates: start: 20090101, end: 20090101
  4. BEVACIZUMAB [Suspect]
     Indication: COLORECTAL CANCER METASTATIC
     Route: 041
     Dates: start: 20090101, end: 20090101
  5. OXALIPLATIN [Suspect]
     Indication: COLORECTAL CANCER METASTATIC
     Route: 041
     Dates: start: 20090101, end: 20090101
  6. ASPIRIN [Concomitant]
     Indication: DRUG USE FOR UNKNOWN INDICATION
     Dosage: UNK
     Route: 065
     Dates: start: 20081201, end: 20090101
  7. OXYCODONE HYDROCHLORIDE [Concomitant]
     Indication: DRUG USE FOR UNKNOWN INDICATION
     Dosage: UNK
     Route: 065
     Dates: start: 20081101, end: 20090101
  8. HYDROCHLOROTHIAZIDE [Concomitant]
     Dosage: UNK
     Route: 048
     Dates: start: 20050101, end: 20090309
  9. RAMIPRIL [Concomitant]
     Dosage: UNK
     Route: 048
     Dates: start: 20050101, end: 20090309
  10. LACTULOSE [Concomitant]
     Dosage: UNK
     Route: 048
     Dates: start: 20090204, end: 20090304
  11. METOCLOPRAMIDE [Concomitant]
     Dosage: UNK
     Route: 048
     Dates: start: 20090209, end: 20090101

REACTIONS (2)
  - CACHEXIA [None]
  - DEHYDRATION [None]
